FAERS Safety Report 5674061-6 (Version None)
Quarter: 2008Q1

REPORT INFORMATION
  Report Type: 
  Country: None (occurrence: None)
  Receive Date: 20080317
  Receipt Date: 20080229
  Transmission Date: 20080703
  Serious: Yes (Other)
  Sender: FDA-Public Use
  Company Number: 8018278

PATIENT
  Age: 68 Year
  Sex: Female

DRUGS (7)
  1. PREDNISOLONE [Suspect]
     Indication: RHEUMATOID ARTHRITIS
     Dosage: 3 MG 1/D PO
     Route: 048
     Dates: start: 19960101
  2. ENBREL [Suspect]
     Indication: RHEUMATOID ARTHRITIS
     Dosage: 25 MG 2/W SC
     Route: 058
     Dates: start: 20040712, end: 20041101
  3. REMICADE [Suspect]
     Indication: RHEUMATOID ARTHRITIS
     Dosage: 3 MG/KG 1/W IV
     Route: 042
     Dates: start: 20020513, end: 20040305
  4. FOSAMAX [Concomitant]
  5. DIHYDROCODEINE TARTRATE, PARACETAMOL [Concomitant]
  6. LISINOPRIL [Concomitant]
  7. ZOPICLONE [Concomitant]

REACTIONS (3)
  - BASAL CELL CARCINOMA [None]
  - ECZEMA [None]
  - SKIN GRAFT [None]
